FAERS Safety Report 6929887-5 (Version None)
Quarter: 2010Q3

REPORT INFORMATION
  Report Type: 
  Country: None (occurrence: None)
  Receive Date: 20100818
  Receipt Date: 20100805
  Transmission Date: 20110219
  Serious: Yes (Hospitalization)
  Sender: FDA-Public Use
  Company Number: PHHY2010US52037

PATIENT
  Sex: Male

DRUGS (1)
  1. EXJADE [Suspect]
     Indication: LYMPHOPROLIFERATIVE DISORDER
     Dosage: 2500 MG DAILY
     Route: 048
     Dates: start: 20100127

REACTIONS (1)
  - CARDIAC DISORDER [None]
